FAERS Safety Report 26069888 (Version 2)
Quarter: 2025Q4

REPORT INFORMATION
  Report Type: Spontaneous
  Country: JP (occurrence: JP)
  Receive Date: 20251120
  Receipt Date: 20251221
  Transmission Date: 20260118
  Serious: Yes (Disabling, Other)
  Sender: MERCK SHARP & DOHME LLC
  Company Number: JP-009507513-2350401

PATIENT
  Age: 71 Year
  Sex: Male
  Weight: 53 kg

DRUGS (2)
  1. KEYTRUDA [Suspect]
     Active Substance: PEMBROLIZUMAB
     Indication: Bladder transitional cell carcinoma stage IV
     Route: 041
     Dates: start: 20250124, end: 20250613
  2. PADCEV [Suspect]
     Active Substance: ENFORTUMAB VEDOTIN-EJFV
     Indication: Bladder transitional cell carcinoma stage IV
     Dosage: TIME INTERVAL: CYCLICAL: ADMINISTER FOR 2 WEEKS, THEN REST FOR THE 3RD WEEK, MAKING 3 WEEKS ONE C...
     Route: 041
     Dates: start: 202501, end: 20250704

REACTIONS (3)
  - Transurethral bladder resection [Unknown]
  - Immune-mediated adrenal insufficiency [Not Recovered/Not Resolved]
  - Immune-mediated hypothyroidism [Unknown]

NARRATIVE: CASE EVENT DATE: 20250704
